FAERS Safety Report 7116327-9 (Version None)
Quarter: 2010Q4

REPORT INFORMATION
  Report Type: 
  Country: None (occurrence: None)
  Receive Date: 20101122
  Receipt Date: 20101115
  Transmission Date: 20110411
  Serious: Yes (Hospitalization)
  Sender: FDA-Public Use
  Company Number: A0890395A

PATIENT
  Sex: Male

DRUGS (14)
  1. KIVEXA [Suspect]
     Indication: PRODUCT USED FOR UNKNOWN INDICATION
     Route: 065
  2. DARUNAVIR [Concomitant]
     Dosage: 600MG TWICE PER DAY
     Route: 065
  3. NORVIR [Concomitant]
     Dosage: 100MG TWICE PER DAY
     Route: 065
  4. VIREAD [Concomitant]
     Dosage: 300MG PER DAY
     Route: 065
  5. INTELENCE [Concomitant]
     Dosage: 200MG TWICE PER DAY
     Route: 065
  6. FENOFIBRATE [Concomitant]
     Dosage: 1TAB PER DAY
     Route: 065
  7. VOLTAREN [Concomitant]
     Dosage: 50MG TWICE PER DAY
     Route: 065
  8. SOFRAMYCIN [Concomitant]
     Dosage: 1DROP AS REQUIRED
     Route: 045
  9. VALTREX [Concomitant]
     Dosage: 2000MG TWICE PER DAY
     Route: 065
  10. ENTROPHEN [Concomitant]
     Dosage: 81MG PER DAY
     Route: 065
  11. CRESTOR [Concomitant]
     Dosage: 10MG PER DAY
     Route: 065
  12. VITAMIN D [Concomitant]
     Route: 065
  13. GARAMYCIN [Concomitant]
     Dosage: 1DROP THREE TIMES PER DAY
     Route: 065
  14. ELAVIL [Concomitant]
     Route: 065

REACTIONS (2)
  - CHEST PAIN [None]
  - MYOCARDIAL INFARCTION [None]
